FAERS Safety Report 16230760 (Version 18)
Quarter: 2021Q3

REPORT INFORMATION
  Report Type: Report from Study
  Country: CA (occurrence: CA)
  Receive Date: 20190423
  Receipt Date: 20210728
  Transmission Date: 20211014
  Serious: Yes (Hospitalization, Other)
  Sender: FDA-Public Use
  Company Number: PHHY2016CA170205

PATIENT
  Age: 58 Year
  Sex: Female

DRUGS (10)
  1. SANDOSTATIN [Suspect]
     Active Substance: OCTREOTIDE ACETATE
     Dosage: UNK UNK, BID (STRENGTH: 75 UG)
     Route: 058
     Dates: start: 20170124, end: 20170207
  2. SANDOSTATIN LAR DEPOT [Suspect]
     Active Substance: OCTREOTIDE ACETATE
     Indication: CARCINOID TUMOUR
     Dosage: 30 MG, QMO (EVERY 4 WEEKS)
     Route: 030
     Dates: start: 20170222
  3. STATEX [SIMVASTATIN] [Suspect]
     Active Substance: SIMVASTATIN
     Indication: RENAL PAIN
     Dosage: 5 MG, PRN
     Route: 065
  4. SANDOSTATIN [Suspect]
     Active Substance: OCTREOTIDE ACETATE
     Indication: CARCINOID TUMOUR
     Dosage: UNK UNK, TID (STRENGTH: 100 MCG FOR ONE WEEK)
     Route: 058
     Dates: start: 20161205, end: 201612
  5. SANDOSTATIN LAR DEPOT [Suspect]
     Active Substance: OCTREOTIDE ACETATE
     Dosage: 30 MG, QMO (EVERY 4 WEEKS)
     Route: 030
  6. SANDOSTATIN [Suspect]
     Active Substance: OCTREOTIDE ACETATE
     Dosage: 75 UG, TID
     Route: 058
     Dates: start: 2017, end: 2017
  7. SANDOSTATIN [Suspect]
     Active Substance: OCTREOTIDE ACETATE
     Dosage: UNK UNK, BID (STRENGTH: 100 UG)
     Route: 058
     Dates: start: 2017, end: 2017
  8. SANDOSTATIN LAR DEPOT [Suspect]
     Active Substance: OCTREOTIDE ACETATE
  9. STATEX [SIMVASTATIN] [Suspect]
     Active Substance: SIMVASTATIN
     Indication: ARTHRALGIA
     Dosage: 5 MG, Q12H
     Route: 065
  10. BISOPROLOL [Suspect]
     Active Substance: BISOPROLOL
     Indication: PRODUCT USED FOR UNKNOWN INDICATION
     Dosage: UNK
     Route: 048

REACTIONS (30)
  - Pyrexia [Unknown]
  - Blood pressure increased [Unknown]
  - Feeling hot [Unknown]
  - Pain [Unknown]
  - Kidney infection [Unknown]
  - Nausea [Unknown]
  - Dizziness [Unknown]
  - Needle issue [Unknown]
  - Renal pain [Unknown]
  - Pneumonia [Unknown]
  - Cough [Unknown]
  - Weight decreased [Unknown]
  - Feeling cold [Recovered/Resolved]
  - Catheter site infection [Unknown]
  - Thrombosis [Unknown]
  - Myalgia [Unknown]
  - Pulmonary pain [Unknown]
  - Diarrhoea [Recovered/Resolved]
  - Nephrolithiasis [Not Recovered/Not Resolved]
  - Asthenia [Unknown]
  - Injection site pain [Recovered/Resolved]
  - Headache [Unknown]
  - Hot flush [Unknown]
  - Chills [Unknown]
  - Arthralgia [Recovered/Resolved]
  - Dizziness [Recovered/Resolved]
  - Productive cough [Unknown]
  - Back pain [Unknown]
  - Burning sensation [Unknown]
  - Drug intolerance [Unknown]

NARRATIVE: CASE EVENT DATE: 20161205
